FAERS Safety Report 17484434 (Version 2)
Quarter: 2020Q2

REPORT INFORMATION
  Report Type: Spontaneous
  Country: FR (occurrence: FR)
  Receive Date: 20200302
  Receipt Date: 20200411
  Transmission Date: 20200713
  Serious: Yes (Hospitalization, Congenital Anomaly, Other)
  Sender: FDA-Public Use
  Company Number: NVSC2020FR052632

PATIENT
  Age: 32 Week
  Sex: Male
  Weight: 1.99 kg

DRUGS (5)
  1. DEPAKINE CHRONO [Suspect]
     Active Substance: VALPROATE SODIUM
     Indication: EXPOSURE DURING PREGNANCY
     Dosage: MATERNAL DOSE (500 MG Q12H (500 MG BID))
     Route: 064
     Dates: start: 20051128, end: 20060703
  2. LAMOTRIGINE. [Suspect]
     Active Substance: LAMOTRIGINE
     Indication: EXPOSURE DURING PREGNANCY
     Dosage: MATERNAL DOSE(100 MG, QA2H, 100 MG BID)
     Route: 064
     Dates: start: 20051128, end: 20060703
  3. SPECIAFOLDINE [Concomitant]
     Active Substance: FOLIC ACID
     Indication: EXPOSURE DURING PREGNANCY
     Dosage: MATERNAL DOSE (UNK)
     Route: 064
  4. SPECIAFOLDINE [Concomitant]
     Active Substance: FOLIC ACID
     Indication: PROPHYLAXIS
     Dosage: UNK
     Route: 064
     Dates: start: 200510
  5. DEPAKINE CHRONO [Suspect]
     Active Substance: VALPROATE SODIUM
     Dosage: 500 MG, BID
     Route: 064
     Dates: start: 20051128, end: 20060703

REACTIONS (53)
  - Dysphagia [Unknown]
  - Nasal congestion [Unknown]
  - Foot deformity [Unknown]
  - Dry skin [Unknown]
  - Rhonchi [Unknown]
  - Pharyngeal disorder [Unknown]
  - Ear disorder [Unknown]
  - Dysmorphism [Unknown]
  - Obstructive airways disorder [Unknown]
  - Agitation [Unknown]
  - Social problem [Unknown]
  - Small fontanelle [Unknown]
  - Hyporeflexia [Unknown]
  - Epilepsy [Unknown]
  - Amblyopia [Unknown]
  - Electroencephalogram abnormal [Unknown]
  - Skull malformation [Unknown]
  - Fine motor delay [Unknown]
  - Cognitive disorder [Unknown]
  - Speech disorder developmental [Unknown]
  - Cerebral ventricle dilatation [Unknown]
  - Ear infection [Unknown]
  - Developmental delay [Unknown]
  - Acquired plagiocephaly [Unknown]
  - Tremor [Unknown]
  - Dyssomnia [Unknown]
  - Speech disorder [Unknown]
  - Premature baby [Unknown]
  - Oropharyngeal pain [Unknown]
  - Strabismus [Unknown]
  - Anxiety [Unknown]
  - Sleep terror [Unknown]
  - Dyspraxia [Unknown]
  - Parasomnia [Unknown]
  - Dependent personality disorder [Recovered/Resolved]
  - Respiratory distress [Recovered/Resolved]
  - Nasopharyngitis [Unknown]
  - Tympanic membrane disorder [Unknown]
  - Behaviour disorder [Unknown]
  - Dysmorphism [Unknown]
  - Foetal anticonvulsant syndrome [Unknown]
  - Middle insomnia [Unknown]
  - Sleep disorder [Unknown]
  - Bronchiolitis [Unknown]
  - Hyperthermia [Unknown]
  - Hypotonia [Unknown]
  - Psychomotor retardation [Unknown]
  - Drooling [Unknown]
  - Pectus excavatum [Unknown]
  - Nasal disorder [Unknown]
  - Musculoskeletal disorder [Unknown]
  - Anaemia postoperative [Unknown]
  - Foetal exposure during pregnancy [Unknown]

NARRATIVE: CASE EVENT DATE: 20060703
